FAERS Safety Report 8043325-3 (Version None)
Quarter: 2012Q1

REPORT INFORMATION
  Report Type: 
  Country: None (occurrence: None)
  Receive Date: 20120112
  Receipt Date: 20120102
  Transmission Date: 20120608
  Serious: Yes (Death)
  Sender: FDA-Public Use
  Company Number: FR-GLAXOSMITHKLINE-B0772490A

PATIENT
  Sex: Male
  Weight: 64 kg

DRUGS (7)
  1. ACETAMINOPHEN [Concomitant]
  2. ARIXTRA [Suspect]
     Indication: THROMBOSIS PROPHYLAXIS
     Dosage: 2.5MG PER DAY
     Route: 058
     Dates: start: 20111117, end: 20111117
  3. MOTILIUM [Concomitant]
  4. ASPIRIN [Suspect]
     Indication: ISCHAEMIC STROKE
     Dosage: 160MG PER DAY
     Route: 048
     Dates: start: 20111105, end: 20111117
  5. LANSOPRAZOLE [Concomitant]
  6. TADENAN [Concomitant]
  7. LOVENOX [Suspect]
     Indication: ISCHAEMIC STROKE
     Dosage: 4000IU PER DAY
     Route: 058
     Dates: start: 20111105, end: 20111116

REACTIONS (1)
  - CEREBRAL HAEMORRHAGE [None]
